FAERS Safety Report 24220436 (Version 1)
Quarter: 2024Q3

REPORT INFORMATION
  Report Type: Spontaneous
  Country: US (occurrence: US)
  Receive Date: 20240818
  Receipt Date: 20240818
  Transmission Date: 20241016
  Serious: No
  Sender: BIOCON
  Company Number: US-MIMS-BCONMC-6066

PATIENT

DRUGS (2)
  1. SEMGLEE (INSULIN GLARGINE-YFGN) [Suspect]
     Active Substance: INSULIN GLARGINE-YFGN
     Indication: Type 2 diabetes mellitus
     Dosage: 80 UNITS/ML, QD
     Route: 058
  2. ADMELOG [Concomitant]
     Active Substance: INSULIN LISPRO
     Indication: Type 2 diabetes mellitus
     Dosage: UNK, UNK
     Route: 065

REACTIONS (1)
  - Device mechanical issue [Unknown]
